FAERS Safety Report 11106941 (Version 1)
Quarter: 2015Q2

REPORT INFORMATION
  Report Type: Spontaneous
  Country: KR (occurrence: KR)
  Receive Date: 20150512
  Receipt Date: 20150512
  Transmission Date: 20150821
  Serious: Yes (Hospitalization, Other)
  Sender: FDA-Public Use
  Company Number: KR-OTSUKA PHARMACEUTICAL CO.-2015_000585

PATIENT
  Age: 69 Year
  Sex: Female
  Weight: 53 kg

DRUGS (31)
  1. GASMOTIN [Concomitant]
     Active Substance: MOSAPRIDE CITRATE
     Indication: GASTRIC DISORDER
     Dosage: 1 IN
     Route: 048
     Dates: start: 20140418
  2. DUROGESIC SMAT [Concomitant]
     Active Substance: FENTANYL
     Indication: BACK PAIN
     Dosage: 1 DOSE(S), 1 IN
     Route: 062
     Dates: start: 20140413, end: 20140430
  3. MACPERAN [Concomitant]
     Dosage: UNK, 1 IN
     Route: 042
     Dates: start: 20140704, end: 20140704
  4. LECTACIN [Concomitant]
     Indication: INFECTION PROPHYLAXIS
     Dosage: 250 MG, 1 IN
     Route: 048
     Dates: start: 20140421
  5. MACPERAN [Concomitant]
     Indication: DYSPEPSIA
     Dosage: 3.84 MG, 1 IN
     Route: 048
     Dates: start: 20140418, end: 20140418
  6. DUROGESIC [Concomitant]
     Active Substance: FENTANYL
     Indication: BACK PAIN
     Dosage: 1 PT (1 FREQUENCY) 25MCG/H, 4.2MG/10.5
     Route: 065
     Dates: start: 20140413, end: 20140430
  7. MAGNESIUM OXIDE. [Concomitant]
     Active Substance: MAGNESIUM OXIDE
     Dosage: 500 MG, 2 IN
     Dates: start: 20140418
  8. TARIVID [Concomitant]
     Active Substance: OFLOXACIN
     Indication: BLEPHARITIS
     Dosage: 1 IN
     Route: 047
     Dates: start: 20140416
  9. FLUCONAZOLE. [Concomitant]
     Active Substance: FLUCONAZOLE
     Indication: INFECTION PROPHYLAXIS
     Dosage: 2 DOSE(S), 2 IN
     Route: 048
     Dates: start: 20140704
  10. FOY [Concomitant]
     Active Substance: GABEXATE MESYLATE
     Indication: AMYLASE INCREASED
     Dosage: 100 MG, 1 IN
     Route: 042
     Dates: start: 20140428, end: 20140510
  11. DULCOLAX [Concomitant]
     Active Substance: BISACODYL OR DOCUSATE SODIUM
     Indication: CONSTIPATION
     Dosage: 2 DOSES, 1 IN
     Route: 048
     Dates: start: 20140416
  12. VEXOL [Concomitant]
     Active Substance: RIMEXOLONE
     Indication: BLEPHARITIS
     Dosage: 1 UNK, 6 IN
     Route: 047
     Dates: start: 20140703
  13. NOXAFIL [Concomitant]
     Active Substance: POSACONAZOLE
     Indication: INFECTION PROPHYLAXIS
     Dosage: 5 ML, 3 IN
     Route: 048
     Dates: start: 20140421, end: 20140424
  14. MAGNESIUM OXIDE. [Concomitant]
     Active Substance: MAGNESIUM OXIDE
     Indication: CONSTIPATION PROPHYLAXIS
     Dosage: 250 MG, 2 IN
     Route: 048
     Dates: start: 20140313, end: 20140417
  15. FOY [Concomitant]
     Active Substance: GABEXATE MESYLATE
     Indication: LIPASE INCREASED
  16. VIGAMOX [Concomitant]
     Active Substance: MOXIFLOXACIN HYDROCHLORIDE
     Indication: BLEPHARITIS
     Dosage: UNK
     Route: 047
     Dates: start: 20140703
  17. MACPERAN [Concomitant]
     Indication: NAUSEA
     Dosage: UNK, 1 IN
     Route: 042
     Dates: start: 20140423, end: 20140423
  18. NIMESULIDE [Concomitant]
     Active Substance: NIMESULIDE
     Indication: ACUTE MYELOID LEUKAEMIA
     Dosage: UNK
     Route: 048
     Dates: start: 20140418
  19. CODAEWON [Concomitant]
     Indication: COUGH
     Dosage: 2 DOSES, 3 IN
     Route: 048
     Dates: start: 20140411, end: 20140417
  20. TACOPEN [Concomitant]
     Indication: BACK PAIN
     Dosage: 1 DOSE, 2 IN
     Route: 048
     Dates: start: 20140421, end: 20140509
  21. ZYLORIC [Concomitant]
     Active Substance: ALLOPURINOL
     Indication: UNEVALUABLE EVENT
     Dosage: 1 DOSE(S), 1 IN
     Route: 048
     Dates: start: 20140418
  22. DACOGEN [Suspect]
     Active Substance: DECITABINE
     Dosage: 20 MG/M2, 1 IN
     Route: 042
     Dates: start: 20140512, end: 20140516
  23. DUPHALAC [Concomitant]
     Active Substance: LACTULOSE
     Indication: CONSTIPATION
     Dosage: 2 IN
     Route: 048
     Dates: start: 20140415
  24. TRIDOL [Concomitant]
     Indication: PAIN
     Dosage: 1 DOSE, IN 1 AS NECESSARY
     Route: 042
     Dates: start: 20140412, end: 20140711
  25. ULTRACET SEMI [Concomitant]
     Indication: BACK PAIN
     Dosage: 1 T (2 FREQUENCY)
     Route: 048
     Dates: start: 20140415, end: 20140420
  26. DACOGEN [Suspect]
     Active Substance: DECITABINE
     Indication: ACUTE MYELOID LEUKAEMIA
     Dosage: 20 MG/M2, 1 IN 1
     Route: 042
     Dates: start: 20140414, end: 20140418
  27. KETOPROFEN. [Concomitant]
     Active Substance: KETOPROFEN
     Indication: BACK PAIN
     Dosage: UNK, 1 IN
     Route: 061
     Dates: start: 20140417, end: 20140503
  28. NEXIUM [Concomitant]
     Active Substance: ESOMEPRAZOLE MAGNESIUM
     Indication: GASTRIC DISORDER
     Dosage: 20 MG, UNK
     Route: 048
     Dates: start: 20140508, end: 20140523
  29. MEGESTROL ACETATE. [Concomitant]
     Active Substance: MEGESTROL ACETATE
     Indication: ADJUVANT THERAPY
     Dosage: 40 MG/ML
     Route: 048
     Dates: start: 20140411, end: 20140516
  30. KYNEX [Concomitant]
     Active Substance: SULFAMETHOXYPYRIDAZINE
     Indication: BLEPHARITIS
     Dosage: UNK
     Route: 047
     Dates: start: 20140703
  31. KYNEX [Concomitant]
     Active Substance: SULFAMETHOXYPYRIDAZINE
     Dosage: 1 BT (PRN FREQUENCY)
     Dates: start: 20140703

REACTIONS (2)
  - Pulmonary oedema [Recovered/Resolved]
  - Septic shock [Recovered/Resolved]

NARRATIVE: CASE EVENT DATE: 20140423
